FAERS Safety Report 7506803-9 (Version None)
Quarter: 2011Q2

REPORT INFORMATION
  Report Type: 
  Country: None (occurrence: None)
  Receive Date: 20110526
  Receipt Date: 20110523
  Transmission Date: 20111010
  Serious: Yes (Hospitalization)
  Sender: FDA-Public Use
  Company Number: A0917047A

PATIENT
  Age: 62 Year
  Sex: Male

DRUGS (2)
  1. AVANDIA [Suspect]
     Dosage: 4MG PER DAY
     Route: 048
     Dates: start: 20060101, end: 20060601
  2. AVANDARYL [Suspect]
     Route: 048
     Dates: start: 20060701, end: 20090201

REACTIONS (2)
  - MYOCARDIAL INFARCTION [None]
  - SWELLING [None]
